FAERS Safety Report 10425956 (Version 1)
Quarter: 2014Q3

REPORT INFORMATION
  Report Type: Report from Study
  Country: US (occurrence: US)
  Receive Date: 20140903
  Receipt Date: 20140903
  Transmission Date: 20150326
  Serious: Yes (Hospitalization)
  Sender: FDA-Public Use
  Company Number: US-BIOGENIDEC-2014BI083232

PATIENT
  Sex: Female

DRUGS (7)
  1. TECFIDERA [Suspect]
     Active Substance: DIMETHYL FUMARATE
     Indication: MULTIPLE SCLEROSIS
     Route: 048
     Dates: start: 201308
  2. OSTEO BI-FLEX ADVANCED [Concomitant]
  3. FLUOXETINE HCL [Concomitant]
     Active Substance: FLUOXETINE HYDROCHLORIDE
  4. BACLOFEN. [Concomitant]
     Active Substance: BACLOFEN
  5. DETROL LA [Concomitant]
     Active Substance: TOLTERODINE TARTRATE
  6. AMPYRA [Concomitant]
     Active Substance: DALFAMPRIDINE
  7. BRAINSTRONG PRENATAL MVI [Concomitant]

REACTIONS (1)
  - Deep vein thrombosis [Unknown]
